FAERS Safety Report 9376454 (Version 1)
Quarter: 2013Q3

REPORT INFORMATION
  Report Type: Spontaneous
  Country: US (occurrence: US)
  Receive Date: 20130701
  Receipt Date: 20130701
  Transmission Date: 20140515
  Serious: Yes (Other)
  Sender: FDA-Public Use
  Company Number: US-ROCHE-1242562

PATIENT
  Sex: Male

DRUGS (1)
  1. XELODA [Suspect]
     Indication: PANCREATIC CARCINOMA
     Dosage: 1500 MG IN MORNING AND 1000 MG IN EVENING
     Route: 065
     Dates: start: 20130611, end: 20130612

REACTIONS (3)
  - Blindness [Recovered/Resolved]
  - Dysstasia [Unknown]
  - Dizziness [Recovered/Resolved]
